FAERS Safety Report 9992534 (Version 1)
Quarter: 2014Q1

REPORT INFORMATION
  Report Type: Spontaneous
  Country: GB (occurrence: GB)
  Receive Date: 20140310
  Receipt Date: 20140310
  Transmission Date: 20141002
  Serious: Yes (Hospitalization, Other)
  Sender: FDA-Public Use
  Company Number: GB-PFIZER INC-2014061697

PATIENT
  Sex: Female

DRUGS (1)
  1. CHLORAMPHENICOL [Suspect]
     Dosage: 0.5 %, UNK
     Route: 047
     Dates: start: 2012

REACTIONS (3)
  - Empyema [Unknown]
  - Tachycardia [Unknown]
  - Hypotension [Unknown]
